FAERS Safety Report 13526583 (Version 1)
Quarter: 2017Q2

REPORT INFORMATION
  Report Type: Spontaneous
  Country: US (occurrence: US)
  Receive Date: 20170508
  Receipt Date: 20170508
  Transmission Date: 20170830
  Serious: Yes (Hospitalization)
  Sender: FDA-Public Use
  Company Number: None

PATIENT
  Age: 87 Year
  Sex: Female

DRUGS (11)
  1. ASPIRIN. [Concomitant]
     Active Substance: ASPIRIN
  2. CRANBERRY. [Concomitant]
     Active Substance: CRANBERRY
  3. OXYBUTYNIN [Concomitant]
     Active Substance: OXYBUTYNIN
  4. SERTRALINE [Concomitant]
     Active Substance: SERTRALINE HYDROCHLORIDE
  5. CARB/LEVO [Concomitant]
     Active Substance: CARBIDOPA\LEVODOPA
  6. NUPLAZID [Suspect]
     Active Substance: PIMAVANSERIN TARTRATE
     Indication: PARKINSON^S DISEASE
     Route: 048
     Dates: start: 201702
  7. DOCUSATE SOD [Concomitant]
  8. KEPPRA [Concomitant]
     Active Substance: LEVETIRACETAM
  9. VIMPAT [Concomitant]
     Active Substance: LACOSAMIDE
  10. LISINOPRIL. [Concomitant]
     Active Substance: LISINOPRIL
  11. METOPROL TAR [Concomitant]

REACTIONS (2)
  - Seizure [None]
  - Therapy cessation [None]

NARRATIVE: CASE EVENT DATE: 201705
